FAERS Safety Report 16023183 (Version 1)
Quarter: 2019Q1

REPORT INFORMATION
  Report Type: Report from Study
  Country: JP (occurrence: JP)
  Receive Date: 20190301
  Receipt Date: 20190301
  Transmission Date: 20190418
  Serious: Yes (Death, Hospitalization)
  Sender: FDA-Public Use
  Company Number: JP-ACTELION-A-CH2019-186756

PATIENT
  Age: 67 Year
  Sex: Male
  Weight: 48 kg

DRUGS (21)
  1. DIART [Concomitant]
     Active Substance: AZOSEMIDE
  2. OPSUMIT [Suspect]
     Active Substance: MACITENTAN
     Indication: PULMONARY HYPERTENSION
     Dosage: 10 MG, QD
     Route: 048
     Dates: start: 20160914, end: 20180611
  3. NEXIUM [Concomitant]
     Active Substance: ESOMEPRAZOLE MAGNESIUM
  4. SPIRONOLACTONE. [Concomitant]
     Active Substance: SPIRONOLACTONE
  5. MUCOSOLVAN [Concomitant]
     Active Substance: AMBROXOL HYDROCHLORIDE
  6. LUNESTA [Concomitant]
     Active Substance: ESZOPICLONE
  7. SELARA [Concomitant]
     Active Substance: EPLERENONE
  8. CARBOCISTEINE [Concomitant]
     Active Substance: CARBOCYSTEINE
  9. ESANBUTOL [Concomitant]
     Active Substance: ETHAMBUTOL HYDROCHLORIDE
  10. CELECOX [Concomitant]
     Active Substance: CELECOXIB
  11. LOXONIN [Concomitant]
     Active Substance: LOXOPROFEN SODIUM
  12. MAGLAX [Concomitant]
     Active Substance: MAGNESIUM OXIDE
  13. AZULFIDINE EN-TABS [Concomitant]
     Active Substance: SULFASALAZINE
  14. REVATIO [Concomitant]
     Active Substance: SILDENAFIL CITRATE
  15. CODEINE [Concomitant]
     Active Substance: CODEINE
  16. PREDNISOLONE. [Concomitant]
     Active Substance: PREDNISOLONE
  17. HALIZON [Concomitant]
     Active Substance: AMPHOTERICIN B
  18. KOLBET [Concomitant]
     Active Substance: IGURATIMOD
  19. DIHYDROCODEINE PHOSPHATE [Concomitant]
     Active Substance: DIHYDROCODEINE PHOSPHATE
  20. CLARITH [Concomitant]
     Active Substance: CLARITHROMYCIN
  21. HYPEN [Concomitant]

REACTIONS (5)
  - Concomitant disease aggravated [Fatal]
  - Oxygen saturation decreased [Fatal]
  - Interstitial lung disease [Fatal]
  - Respiratory failure [Fatal]
  - Dyspnoea [Fatal]

NARRATIVE: CASE EVENT DATE: 20180603
